FAERS Safety Report 7618683-1 (Version None)
Quarter: 2011Q3

REPORT INFORMATION
  Report Type: 
  Country: None (occurrence: None)
  Receive Date: 20110718
  Receipt Date: 20110713
  Transmission Date: 20111222
  Serious: Yes (Death)
  Sender: FDA-Public Use
  Company Number: US-CELGENEUS-163-21880-11071394

PATIENT
  Sex: Female

DRUGS (12)
  1. ZEBETA [Concomitant]
     Route: 065
  2. MUCINEX [Concomitant]
     Route: 065
  3. ARICEPT [Concomitant]
     Route: 065
  4. FLONASE [Concomitant]
     Route: 065
  5. XOPENEX [Concomitant]
     Route: 065
  6. SINGULAIR [Concomitant]
     Route: 065
  7. REVLIMID [Suspect]
     Indication: LYMPHOMA
     Dosage: 5 MILLIGRAM
     Route: 048
     Dates: start: 20101027, end: 20110713
  8. XANAX [Concomitant]
     Route: 065
  9. CENTRUM [Concomitant]
     Route: 065
  10. LASIX [Concomitant]
     Route: 065
  11. NORTRIPTYLINE HCL [Concomitant]
     Route: 065
  12. LITHIUM CARBONATE [Concomitant]
     Route: 065

REACTIONS (1)
  - DEATH [None]
